FAERS Safety Report 6664477-3 (Version None)
Quarter: 2010Q2

REPORT INFORMATION
  Report Type: 
  Country: None (occurrence: None)
  Receive Date: 20100401
  Receipt Date: 20100323
  Transmission Date: 20101027
  Serious: Yes (Other)
  Sender: FDA-Public Use
  Company Number: US-AMGEN-KDC402675

PATIENT
  Sex: Female

DRUGS (16)
  1. NEULASTA [Suspect]
     Indication: CHEMOTHERAPY
  2. BEVACIZUMAB [Suspect]
     Route: 042
     Dates: start: 20100128
  3. DEXAMETHASONE [Suspect]
     Route: 048
  4. DOCETAXEL [Suspect]
     Route: 042
     Dates: start: 20100128
  5. TRASTUZUMAB [Suspect]
     Route: 042
     Dates: start: 20100128
  6. CARBOPLATIN [Suspect]
     Route: 042
     Dates: start: 20100128
  7. LISINOPRIL [Suspect]
     Dates: start: 20020801
  8. FATTY ACID [Concomitant]
  9. ASPIRIN [Concomitant]
     Dates: start: 20070801
  10. OMEPRAZOLE [Concomitant]
     Dates: start: 20090901
  11. FISH OIL [Concomitant]
     Dates: start: 20090901
  12. ONDANSETRON HYDROCHLORIDE [Concomitant]
     Dates: start: 20100128
  13. ACIDOPHILUS [Concomitant]
     Dates: start: 20100204
  14. METFORMIN (GLUCOPHAGE) [Concomitant]
     Dates: start: 20070809
  15. PROCHLORPERAZINE [Concomitant]
  16. ENZYMES [Concomitant]

REACTIONS (5)
  - HEADACHE [None]
  - HYPERGLYCAEMIA [None]
  - HYPERTENSION [None]
  - PAIN [None]
  - PELVIC PAIN [None]
